FAERS Safety Report 12908857 (Version 2)
Quarter: 2016Q4

REPORT INFORMATION
  Report Type: Report from Study
  Country: US (occurrence: US)
  Receive Date: 20161103
  Receipt Date: 20161128
  Transmission Date: 20170207
  Serious: No
  Sender: FDA-Public Use
  Company Number: US-AMGEN-USASL2016142856

PATIENT
  Age: 45 Year
  Sex: Female

DRUGS (1)
  1. ENBREL [Suspect]
     Active Substance: ETANERCEPT
     Indication: ANKYLOSING SPONDYLITIS
     Dosage: 50 MG, QWK
     Route: 065

REACTIONS (6)
  - Pain [Not Recovered/Not Resolved]
  - Injection site warmth [Unknown]
  - Peripheral swelling [Unknown]
  - Injection site reaction [Recovering/Resolving]
  - Injection site bruising [Unknown]
  - Injection site erythema [Unknown]
